FAERS Safety Report 14553371 (Version 8)
Quarter: 2025Q3

REPORT INFORMATION
  Report Type: Spontaneous
  Country: JP (occurrence: JP)
  Receive Date: 20180220
  Receipt Date: 20250813
  Transmission Date: 20251020
  Serious: Yes (Hospitalization, Other)
  Sender: PFIZER
  Company Number: JP-PFIZER INC-2018067280

PATIENT
  Age: 81 Year
  Sex: Male

DRUGS (9)
  1. DOCETAXEL [Interacting]
     Active Substance: DOCETAXEL
     Indication: Lung adenocarcinoma stage IV
  2. LOXOPROFEN [Interacting]
     Active Substance: LOXOPROFEN
     Route: 048
  3. REBAMIPIDE [Interacting]
     Active Substance: REBAMIPIDE
     Route: 048
  4. GEFITINIB [Concomitant]
     Active Substance: GEFITINIB
     Indication: Lung adenocarcinoma stage IV
  5. PEMETREXED [Concomitant]
     Active Substance: PEMETREXED
     Indication: Lung adenocarcinoma stage IV
  6. ERLOTINIB [Concomitant]
     Active Substance: ERLOTINIB
     Indication: Lung adenocarcinoma stage IV
  7. AZELNIDIPINE [Concomitant]
     Active Substance: AZELNIDIPINE
     Indication: Hypertension
     Route: 048
  8. DUTASTERIDE [Concomitant]
     Active Substance: DUTASTERIDE
     Route: 048
  9. TAMSULOSIN [Concomitant]
     Active Substance: TAMSULOSIN
     Route: 048

REACTIONS (2)
  - Drug interaction [Recovered/Resolved]
  - Immune thrombocytopenia [Recovered/Resolved]
